FAERS Safety Report 24076140 (Version 3)
Quarter: 2024Q3

REPORT INFORMATION
  Report Type: Spontaneous
  Country: US (occurrence: US)
  Receive Date: 20240710
  Receipt Date: 20240822
  Transmission Date: 20241017
  Serious: No
  Sender: JOHNSON AND JOHNSON
  Company Number: US-JNJFOC-20240709531

PATIENT
  Age: 45 Year
  Sex: Female

DRUGS (1)
  1. SIMPONI [Suspect]
     Active Substance: GOLIMUMAB
     Indication: Colitis ulcerative
     Route: 058
     Dates: start: 201804

REACTIONS (8)
  - Injection site haemorrhage [Unknown]
  - Injection site bruising [Unknown]
  - Injection site pain [Unknown]
  - Device deployment issue [Unknown]
  - Injection site reaction [Unknown]
  - Product dose omission issue [Unknown]
  - Drug delivery system malfunction [Unknown]
  - Off label use [Unknown]

NARRATIVE: CASE EVENT DATE: 20240702
